FAERS Safety Report 7467841-8 (Version None)
Quarter: 2011Q2

REPORT INFORMATION
  Report Type: 
  Country: None (occurrence: None)
  Receive Date: 20110509
  Receipt Date: 20110204
  Transmission Date: 20111010
  Serious: No
  Sender: FDA-Public Use
  Company Number: US-ALEXION-A201100145

PATIENT
  Sex: Female

DRUGS (25)
  1. ASPIRIN [Concomitant]
     Dosage: 81 MG, QD
  2. BRIMONIDINE [Concomitant]
     Dosage: 1 GTT, BID
     Route: 047
  3. CALCIUM CARBONATE [Concomitant]
     Dosage: 500 MG, BID
  4. PREDNISONE [Concomitant]
     Dosage: 5 MG, QD
  5. TIMOLOL [Concomitant]
     Dosage: UNK
     Route: 047
  6. FUROSEMIDE [Concomitant]
     Dosage: 20 MG, QD
  7. FLORASTOR [Concomitant]
     Dosage: 500 MG, BID FOR 4 WEEKS
  8. NITROGLYCERIN [Concomitant]
     Dosage: 0.4 MG, PRN
     Route: 060
  9. SOLIRIS [Suspect]
     Indication: PAROXYSMAL NOCTURNAL HAEMOGLOBINURIA
     Dosage: 600 MG, QW
     Route: 042
     Dates: start: 20071004
  10. ARANESP [Concomitant]
     Dosage: 300 UG, Q2W
  11. ATENOLOL [Concomitant]
     Dosage: 25 MG, BID
  12. QUESTRAN [Concomitant]
     Dosage: 1 PACKET BID, PRN
  13. COMBIVENT [Concomitant]
     Dosage: 2 PUFFS EVERY 4 HOURS PRN
  14. SOLIRIS [Suspect]
     Dosage: 900 MG, Q2W
     Route: 042
  15. AMOXICILLIN [Concomitant]
     Dosage: 2 G, QID FOR 3 WEEKS
     Route: 042
  16. GLIPIZIDE [Concomitant]
     Dosage: 5 MG, BID
  17. LISINOPRIL [Concomitant]
     Dosage: 20 MG, QD
  18. XALATAN [Concomitant]
     Dosage: 1 GTT, BID
     Route: 047
  19. VITAMIN A [Concomitant]
     Dosage: 3000 IU, QD
  20. PERCOCET [Concomitant]
     Dosage: 1 TABLET EVERY 4 HOURS PRN
  21. NORVASC [Concomitant]
     Dosage: 5 MG, QD
  22. VITAMIN C                          /00008001/ [Concomitant]
     Dosage: 500 MG, QD
  23. MULTI-VITAMINS [Concomitant]
     Dosage: UNK
  24. OMEPRAZOLE [Concomitant]
     Dosage: 20 MG, QD
  25. SIMVASTATIN [Concomitant]
     Dosage: 20 MG, QD

REACTIONS (1)
  - VERTIGO [None]
